FAERS Safety Report 8190339-9 (Version None)
Quarter: 2012Q1

REPORT INFORMATION
  Report Type: 
  Country: None (occurrence: None)
  Receive Date: 20120305
  Receipt Date: 20120217
  Transmission Date: 20120608
  Serious: Yes (Other)
  Sender: FDA-Public Use
  Company Number: OPER20120123

PATIENT
  Sex: Female

DRUGS (3)
  1. OPANA ER [Suspect]
     Indication: ARTHRITIS
     Dosage: MULTIPLE TABLETS,ORAL
     Route: 048
  2. OPANA ER [Suspect]
     Indication: INTERVERTEBRAL DISC DEGENERATION
     Dosage: MULTIPLE TABLETS,ORAL
     Route: 048
  3. OPANA ER 40MG (OXYMORPHONE HYDROCHLORIDE)(40 MILLIGRAM, TABLETS)(OXYMO [Concomitant]

REACTIONS (1)
  - INADEQUATE ANALGESIA [None]
